FAERS Safety Report 4584809-X (Version None)
Quarter: 2005Q1

REPORT INFORMATION
  Report Type: 
  Country: None (occurrence: None)
  Receive Date: 20050217
  Receipt Date: 20050203
  Transmission Date: 20050727
  Serious: Yes (Other)
  Sender: FDA-Public Use
  Company Number: PHNU2005DE00820

PATIENT
  Age: 72 Year
  Sex: Male

DRUGS (1)
  1. AREDIA [Suspect]
     Indication: PLASMACYTOMA
     Dosage: 90 MG, QMO
     Route: 042
     Dates: start: 20000301

REACTIONS (9)
  - BACTERIAL INFECTION [None]
  - BENIGN BONE NEOPLASM [None]
  - BIOPSY BONE ABNORMAL [None]
  - BONE DISORDER [None]
  - DENTAL TREATMENT [None]
  - HISTOLOGY ABNORMAL [None]
  - MUCOSAL INFLAMMATION [None]
  - OSTEONECROSIS [None]
  - TOOTH EXTRACTION [None]
